FAERS Safety Report 16206200 (Version 1)
Quarter: 2019Q2

REPORT INFORMATION
  Report Type: Spontaneous
  Country: CN (occurrence: CN)
  Receive Date: 20190417
  Receipt Date: 20190417
  Transmission Date: 20190711
  Serious: Yes (Other)
  Sender: FDA-Public Use
  Company Number: CN-ROCHE-2305367

PATIENT
  Age: 43 Year
  Sex: Male

DRUGS (19)
  1. MABTHERA [Suspect]
     Active Substance: RITUXIMAB
     Indication: DIFFUSE LARGE B-CELL LYMPHOMA
     Dosage: SUBSEQUENT DOSES RECEIVED ON 31/OCT/2016, 21/NOV/2016, 12/DEC/2016, 02/JAN/2017, 23/JAN/2017, 18/FEB
     Route: 065
     Dates: start: 20161009
  2. IFOSFAMIDE. [Concomitant]
     Active Substance: IFOSFAMIDE
     Indication: DIFFUSE LARGE B-CELL LYMPHOMA
     Dosage: DAY 1-DAY 3
     Route: 065
     Dates: start: 20171104
  3. MITOXANTRONE [Concomitant]
     Active Substance: MITOXANTRONE HYDROCHLORIDE
     Indication: DIFFUSE LARGE B-CELL LYMPHOMA
     Dosage: DAY 1
     Route: 065
     Dates: start: 20171104
  4. ADRIAMYCIN [Concomitant]
     Active Substance: DOXORUBICIN HYDROCHLORIDE
     Indication: DIFFUSE LARGE B-CELL LYMPHOMA
     Dosage: SUBSEQUENT DOSES RECIEVED ON 31/OCT/2016, 21/NOV/2016, 12/DEC/2016, 02/JAN/2017, 18/FEB/2017 AND 11/
     Route: 065
     Dates: start: 20161009
  5. CYTARABINE. [Concomitant]
     Active Substance: CYTARABINE
     Dosage: DAY 1 TO DAY 3?SUBSEQUENT DOSES 06/OCT/2017 AND 04/DEC/2017
     Route: 065
     Dates: start: 20170912
  6. ETOPOSIDE. [Concomitant]
     Active Substance: ETOPOSIDE
     Dosage: DAY 1-DAY 3?SUBSEQUENT DOSE 04/DEC/2017
     Route: 065
     Dates: start: 20170912
  7. VINCRISTINE [Concomitant]
     Active Substance: VINCRISTINE
     Indication: DIFFUSE LARGE B-CELL LYMPHOMA
     Dosage: SUBSEQUENT DOSES RECIEVED ON 31/OCT/2016, 21/NOV/2016, 12/DEC/2016, 02/JAN/2017, 23/JAN/2017, 18/FEB
     Route: 065
     Dates: start: 20161009
  8. CISPLATIN. [Concomitant]
     Active Substance: CISPLATIN
     Indication: DIFFUSE LARGE B-CELL LYMPHOMA
     Dosage: DAY 1
     Route: 065
     Dates: start: 20170718
  9. CYCLOPHOSPHAMIDE. [Concomitant]
     Active Substance: CYCLOPHOSPHAMIDE
     Indication: DIFFUSE LARGE B-CELL LYMPHOMA
     Dosage: SUBSEQUENT DOSES RECIEVED ON 31/OCT/2016, 21/NOV/2016, 12/DEC/2016, 02/JAN/2017, 23/JAN/2017, 18/FEB
     Route: 065
     Dates: start: 20161009
  10. CYTARABINE. [Concomitant]
     Active Substance: CYTARABINE
     Dosage: DAY 1 TO 3
     Route: 065
     Dates: start: 20170912
  11. PREDNISONE. [Concomitant]
     Active Substance: PREDNISONE
     Indication: DIFFUSE LARGE B-CELL LYMPHOMA
     Dosage: SUBSEQUENT DOSES RECIEVED ON 31/OCT/2016, 21/NOV/2016, 12/DEC/2016, 02/JAN/2017, 23/JAN/2017, 18/FEB
     Route: 065
     Dates: start: 20161009
  12. CARMUSTINE. [Concomitant]
     Active Substance: CARMUSTINE
     Dosage: PRETREATMENT WITH AUTOLOGOUS STEM CELL TRANSPLANTATION
     Route: 065
     Dates: start: 20171204
  13. ALKERAN [Concomitant]
     Active Substance: MELPHALAN
     Dosage: PRETREATMENT WITH AUTOLOGOUS STEM CELL TRANSPLANTATION
     Route: 065
     Dates: start: 20171204
  14. CISPLATIN. [Concomitant]
     Active Substance: CISPLATIN
     Dosage: DAY 1?NEXT DOSE RECEIVED ON 06/OCT/2017
     Route: 065
     Dates: start: 20170811
  15. CYTARABINE. [Concomitant]
     Active Substance: CYTARABINE
     Indication: DIFFUSE LARGE B-CELL LYMPHOMA
     Dosage: DAY 2
     Route: 065
     Dates: start: 20170718
  16. CYTARABINE. [Concomitant]
     Active Substance: CYTARABINE
     Dosage: DAY 2
     Route: 065
     Dates: start: 20170811
  17. DEXAMETHASONE. [Concomitant]
     Active Substance: DEXAMETHASONE
     Indication: DIFFUSE LARGE B-CELL LYMPHOMA
     Dosage: DAY 1-DAY 4
     Route: 065
     Dates: start: 20170718
  18. DEXAMETHASONE. [Concomitant]
     Active Substance: DEXAMETHASONE
     Dosage: DAY 1 TO DAY 4?SUBSEQUENT DOSE 06/OCT/2017
     Route: 065
     Dates: start: 20170811
  19. ETOPOSIDE. [Concomitant]
     Active Substance: ETOPOSIDE
     Indication: DIFFUSE LARGE B-CELL LYMPHOMA
     Dosage: DAY 1-DAY 3
     Route: 065
     Dates: start: 20171104

REACTIONS (8)
  - Skin ulcer [Recovering/Resolving]
  - Diffuse large B-cell lymphoma recurrent [Unknown]
  - Swelling [Recovering/Resolving]
  - Bone pain [Recovering/Resolving]
  - Erythema [Recovering/Resolving]
  - Pain [Recovering/Resolving]
  - Pain in extremity [Recovering/Resolving]
  - Lymphadenopathy [Unknown]
